FAERS Safety Report 5145193-6 (Version None)
Quarter: 2006Q4

REPORT INFORMATION
  Report Type: 
  Country: None (occurrence: None)
  Receive Date: 20061107
  Receipt Date: 20061002
  Transmission Date: 20070319
  Serious: Yes (Other)
  Sender: FDA-Public Use
  Company Number: BR-ROCHE-465896

PATIENT
  Age: 28 Year
  Sex: Female

DRUGS (2)
  1. ROACUTAN [Suspect]
     Indication: ACNE
     Route: 048
     Dates: start: 20060615, end: 20060615
  2. ROACUTAN [Suspect]
     Route: 048

REACTIONS (8)
  - ABNORMAL FAECES [None]
  - APHTHOUS STOMATITIS [None]
  - DRY MOUTH [None]
  - DRY SKIN [None]
  - FATIGUE [None]
  - MUCOSAL DRYNESS [None]
  - PAIN IN EXTREMITY [None]
  - SYSTEMIC LUPUS ERYTHEMATOSUS [None]
